FAERS Safety Report 8568011-2 (Version None)
Quarter: 2012Q3

REPORT INFORMATION
  Report Type: 
  Country: None (occurrence: None)
  Receive Date: 20120803
  Receipt Date: 20110923
  Transmission Date: 20120928
  Serious: No
  Sender: FDA-Public Use
  Company Number: US-ABBOTT-11P-163-0857826-00

PATIENT
  Age: 75 Year
  Sex: Male
  Weight: 88.984 kg

DRUGS (4)
  1. UROXATROL [Concomitant]
     Indication: BENIGN PROSTATIC HYPERPLASIA
  2. NIASPAN [Suspect]
     Indication: DRUG THERAPY
     Dates: start: 20100101
  3. SIMVASTATIN [Concomitant]
     Indication: PRODUCT USED FOR UNKNOWN INDICATION
  4. ZETIA [Concomitant]
     Indication: PRODUCT USED FOR UNKNOWN INDICATION
     Dates: start: 20110801

REACTIONS (1)
  - MYALGIA [None]
